FAERS Safety Report 7194526-8 (Version None)
Quarter: 2010Q4

REPORT INFORMATION
  Report Type: 
  Country: None (occurrence: None)
  Receive Date: 20101223
  Receipt Date: 20101220
  Transmission Date: 20110411
  Serious: Yes (Other)
  Sender: FDA-Public Use
  Company Number: US-BAYER-2010-006603

PATIENT
  Sex: Female
  Weight: 55.782 kg

DRUGS (2)
  1. ASPIRIN [Suspect]
     Dosage: 81 MG, UNK
     Dates: start: 20100801, end: 20101218
  2. LEVOXYL [Concomitant]

REACTIONS (2)
  - DEAFNESS [None]
  - TINNITUS [None]
